FAERS Safety Report 5027094-7 (Version None)
Quarter: 2006Q2

REPORT INFORMATION
  Report Type: 
  Country: None (occurrence: None)
  Receive Date: 20060612
  Receipt Date: 20060526
  Transmission Date: 20061013
  Serious: Yes (Hospitalization, Other)
  Sender: FDA-Public Use
  Company Number: US-2006-005922

PATIENT
  Age: 48 Year
  Sex: Female

DRUGS (6)
  1. BETASERON [Suspect]
     Indication: RELAPSING-REMITTING MULTIPLE SCLEROSIS
     Dosage: 8 MIU, EVERY 2D, SUBCUTANEOUS
     Route: 058
     Dates: start: 20010525, end: 20060316
  2. CORTICOSTEROIDS () [Suspect]
     Indication: POLYMYALGIA RHEUMATICA
     Dates: start: 19870101
  3. NORVASC [Concomitant]
  4. HYDROCHLOROTHIAZIDE [Concomitant]
  5. CHOLESTEROL-AND TRIGLYCERIDE REDUCERS [Concomitant]
  6. NEURONTIN [Concomitant]

REACTIONS (7)
  - HYPOAESTHESIA [None]
  - MYOCARDIAL INFARCTION [None]
  - OSTEONECROSIS [None]
  - POST PROCEDURAL COMPLICATION [None]
  - POSTOPERATIVE WOUND INFECTION [None]
  - SCIATICA [None]
  - THROMBOSIS [None]
